FAERS Safety Report 7554955-7 (Version None)
Quarter: 2011Q2

REPORT INFORMATION
  Report Type: 
  Country: None (occurrence: None)
  Receive Date: 20110617
  Receipt Date: 20110602
  Transmission Date: 20111010
  Serious: Yes (Death, Hospitalization)
  Sender: FDA-Public Use
  Company Number: US-ACTELION-A-NJ2010-42119

PATIENT

DRUGS (2)
  1. TRACLEER [Suspect]
     Indication: PULMONARY ARTERIAL HYPERTENSION
     Dosage: UNK
     Route: 048
     Dates: start: 20100708
  2. CALCIUM CHANNEL BLOCKERS [Concomitant]

REACTIONS (7)
  - PYREXIA [None]
  - DYSPNOEA [None]
  - RENAL FAILURE ACUTE [None]
  - DEATH [None]
  - COUGH [None]
  - CYSTITIS [None]
  - CARDIAC FAILURE [None]
